FAERS Safety Report 17270927 (Version 2)
Quarter: 2020Q3

REPORT INFORMATION
  Report Type: Spontaneous
  Country: US (occurrence: US)
  Receive Date: 20200115
  Receipt Date: 20200916
  Transmission Date: 20201102
  Serious: No
  Sender: FDA-Public Use
  Company Number: US-AMGEN-USASP2020003832

PATIENT

DRUGS (3)
  1. FOSTAMATINIB DISODIUM [Concomitant]
     Active Substance: FOSTAMATINIB DISODIUM
     Dosage: 100 MILLIGRAM, BID
     Route: 048
  2. FOSTAMATINIB DISODIUM [Concomitant]
     Active Substance: FOSTAMATINIB DISODIUM
     Dosage: 150 MILLIGRAM, BID
     Route: 048
  3. ROMIPLOSTIM [Suspect]
     Active Substance: ROMIPLOSTIM
     Indication: IMMUNE THROMBOCYTOPENIA
     Dosage: UNK
     Route: 065

REACTIONS (2)
  - Diarrhoea [Recovered/Resolved]
  - Adverse drug reaction [Unknown]
